FAERS Safety Report 5906660-8 (Version None)
Quarter: 2008Q3

REPORT INFORMATION
  Report Type: 
  Country: None (occurrence: None)
  Receive Date: 20080930
  Receipt Date: 20080922
  Transmission Date: 20090109
  Serious: Yes (Other)
  Sender: FDA-Public Use
  Company Number: IDA-00132

PATIENT
  Age: 45 Year
  Sex: Female

DRUGS (1)
  1. INDERAL [Suspect]
     Dosage: TABLET
     Dates: start: 20070501, end: 20070601

REACTIONS (1)
  - DRUG ERUPTION [None]
